FAERS Safety Report 17638854 (Version 1)
Quarter: 2020Q2

REPORT INFORMATION
  Report Type: Spontaneous
  Country: US (occurrence: US)
  Receive Date: 20200407
  Receipt Date: 20200407
  Transmission Date: 20200713
  Serious: No
  Sender: FDA-Public Use
  Company Number: US-SA-2020SA084935

PATIENT
  Age: 58 Year
  Sex: Female
  Weight: 112.47 kg

DRUGS (19)
  1. NORMAL SALINE [Concomitant]
     Active Substance: SODIUM CHLORIDE
  2. VITAMIN D2 [Concomitant]
     Active Substance: ERGOCALCIFEROL
  3. LUMIZYME [Suspect]
     Active Substance: ALGLUCOSIDASE ALFA
     Indication: GLYCOGEN STORAGE DISEASE TYPE II
     Dosage: 20.45 MG/KG, QOW (2300MG)
     Route: 041
     Dates: start: 20131014
  4. CLINDAMYCIN. [Concomitant]
     Active Substance: CLINDAMYCIN
  5. FISH OIL [Concomitant]
     Active Substance: FISH OIL
  6. LISINOPRIL. [Concomitant]
     Active Substance: LISINOPRIL
  7. ACETAMINOPHEN. [Concomitant]
     Active Substance: ACETAMINOPHEN
  8. BACLOFEN. [Concomitant]
     Active Substance: BACLOFEN
  9. CYCLOBENZAPRINE. [Concomitant]
     Active Substance: CYCLOBENZAPRINE
  10. ONGLYZA [Concomitant]
     Active Substance: SAXAGLIPTIN HYDROCHLORIDE
  11. MULTIVITAMINS [VITAMINS NOS] [Concomitant]
     Active Substance: VITAMINS
  12. DIPHENHYDRAMINE. [Concomitant]
     Active Substance: DIPHENHYDRAMINE
  13. LORATADINE. [Concomitant]
     Active Substance: LORATADINE
  14. EPINEPHRINE. [Concomitant]
     Active Substance: EPINEPHRINE
  15. ACTOS [Concomitant]
     Active Substance: PIOGLITAZONE HYDROCHLORIDE
  16. NORCO [Concomitant]
     Active Substance: ACETAMINOPHEN\HYDROCODONE BITARTRATE
  17. GUAIFENESIN DM [Concomitant]
     Active Substance: DEXTROMETHORPHAN\DEXTROMETHORPHAN HYDROBROMIDE\GUAIFENESIN
  18. LANTUS [Concomitant]
     Active Substance: INSULIN GLARGINE
  19. VICODIN [Concomitant]
     Active Substance: ACETAMINOPHEN\HYDROCODONE BITARTRATE

REACTIONS (1)
  - Conjunctivitis [Unknown]
